FAERS Safety Report 9001914 (Version 2)
Quarter: 2013Q1

REPORT INFORMATION
  Report Type: Spontaneous
  Country: CA (occurrence: CA)
  Receive Date: 20130107
  Receipt Date: 20130122
  Transmission Date: 20140127
  Serious: Yes (Life-Threatening)
  Sender: FDA-Public Use
  Company Number: CA-ROCHE-1176953

PATIENT
  Age: 54 Year
  Sex: Male
  Weight: 56 kg

DRUGS (14)
  1. ACTIVASE [Suspect]
     Indication: PERIPHERAL ARTERIAL OCCLUSIVE DISEASE
     Dosage: DOSE: 1MG/HR
     Route: 013
     Dates: start: 20130102, end: 20130102
  2. HEPARIN [Concomitant]
     Indication: PERIPHERAL ARTERIAL OCCLUSIVE DISEASE
     Dosage: WEIGHT BASED 2300 HOURS
     Route: 042
     Dates: start: 20121225, end: 20130101
  3. NICOTINE PATCH [Concomitant]
     Dosage: 21 MG/HOUR
     Route: 061
     Dates: start: 20121231
  4. NIFEDIPINE ER [Concomitant]
     Route: 048
     Dates: start: 20121225, end: 20130102
  5. ASA [Concomitant]
     Route: 048
     Dates: start: 20121226, end: 20130102
  6. ROSUVASTATIN [Concomitant]
     Indication: DYSLIPIDAEMIA
     Route: 048
     Dates: start: 20121225, end: 20130102
  7. RABEPRAZOLE [Concomitant]
     Route: 048
     Dates: start: 20121225, end: 20130102
  8. HYDROMORPHONE [Concomitant]
     Dosage: 1 TO 3 MG INTRAVENOUS/SUBCUTANEOS
     Route: 065
     Dates: start: 20121225, end: 20130102
  9. HYDROMORPHONE [Concomitant]
     Dosage: 4 TO 8 MG
     Route: 048
     Dates: start: 20121225, end: 20130102
  10. HYDROMORPHONE [Concomitant]
     Dosage: EXTENDED RELEASE
     Route: 048
     Dates: start: 20121225, end: 20130102
  11. DIMENHYDRINATE [Concomitant]
     Dosage: 50-100 MG, INTRAVENOUS/ ORAL
     Route: 065
     Dates: start: 20121225
  12. NICOTINE GUM [Concomitant]
     Route: 048
     Dates: start: 20121231, end: 20130102
  13. HYDROCHLOROTHIAZIDE [Concomitant]
     Route: 048
     Dates: start: 20130102, end: 20130102
  14. LORAZEPAM [Concomitant]
     Route: 048
     Dates: start: 20130102, end: 20130102

REACTIONS (1)
  - Haemorrhagic stroke [Not Recovered/Not Resolved]
